FAERS Safety Report 7594999-2 (Version None)
Quarter: 2011Q2

REPORT INFORMATION
  Report Type: 
  Country: None (occurrence: None)
  Receive Date: 20110620
  Receipt Date: 20110414
  Transmission Date: 20111010
  Serious: Yes (Hospitalization)
  Sender: FDA-Public Use
  Company Number: UTC-006364

PATIENT
  Age: 62 Year
  Sex: Female

DRUGS (3)
  1. ADCIRCA [Concomitant]
  2. LETAIRIS [Concomitant]
  3. TYVASO [Suspect]
     Dosage: 216 MCG (54 MCG, 4 IN 1 D), INHALATION
     Route: 055

REACTIONS (3)
  - ATRIAL FLUTTER [None]
  - PNEUMONIA [None]
  - MIDDLE EAR EFFUSION [None]
